FAERS Safety Report 14340287 (Version 1)
Quarter: 2018Q1

REPORT INFORMATION
  Report Type: Spontaneous
  Country: HR (occurrence: HR)
  Receive Date: 20180101
  Receipt Date: 20180101
  Transmission Date: 20180509
  Serious: Yes (Other)
  Sender: FDA-Public Use
  Company Number: HR-009507513-1712HRV013358

PATIENT
  Age: 48 Year
  Sex: Female

DRUGS (1)
  1. SINGULAIR [Suspect]
     Active Substance: MONTELUKAST SODIUM
     Indication: ASTHMA
     Dosage: UNKNOWN DAILY DOSE
     Route: 048
     Dates: start: 20170815, end: 20171031

REACTIONS (25)
  - Dyspnoea [Unknown]
  - Paraesthesia [Unknown]
  - Dry throat [Unknown]
  - Headache [Unknown]
  - Malaise [Unknown]
  - Dyspepsia [Unknown]
  - Chest discomfort [Unknown]
  - Palpitations [Unknown]
  - Fungal infection [Unknown]
  - Arthralgia [Unknown]
  - Abdominal distension [Unknown]
  - Cough [Unknown]
  - Pharyngitis [Unknown]
  - Sinusitis [Unknown]
  - Periodontitis [Unknown]
  - Alopecia [Unknown]
  - Pruritus [Unknown]
  - Vision blurred [Unknown]
  - Hypopnoea [Unknown]
  - Palmar erythema [Unknown]
  - Hypotension [Unknown]
  - Chest pain [Unknown]
  - Perioral dermatitis [Unknown]
  - Muscle spasms [Unknown]
  - Nasal congestion [Unknown]

NARRATIVE: CASE EVENT DATE: 20170815
